FAERS Safety Report 5410295-3 (Version None)
Quarter: 2007Q3

REPORT INFORMATION
  Report Type: 
  Country: None (occurrence: None)
  Receive Date: 20070808
  Receipt Date: 20070117
  Transmission Date: 20080115
  Serious: Yes (Death)
  Sender: FDA-Public Use
  Company Number: JPI-P-000210

PATIENT
  Age: 44 Year
  Sex: Female

DRUGS (6)
  1. XYREM [Suspect]
     Indication: CATAPLEXY
     Dosage: (7 GM), ORAL
     Route: 048
     Dates: start: 20051001
  2. PREGABALIN (PREGABALIN) [Concomitant]
  3. DIAZEPAM [Concomitant]
  4. RAMELTEON (RAMELTEON) [Concomitant]
  5. TEGASEROD MALEATE (TEGASEROD MALEATE) [Concomitant]
  6. TIZANIDINE HCL [Concomitant]

REACTIONS (1)
  - DROWNING [None]
